FAERS Safety Report 5266740-X (Version None)
Quarter: 2007Q1

REPORT INFORMATION
  Report Type: 
  Country: None (occurrence: None)
  Receive Date: 20070305
  Receipt Date: 20070214
  Transmission Date: 20070707
  Serious: Yes (Hospitalization)
  Sender: FDA-Public Use
  Company Number: B0460129A

PATIENT
  Age: 59 Year
  Sex: Female

DRUGS (3)
  1. LITHIUM SALT (FORMULATION UNKNOWN) (LITHIUM SALT) [Suspect]
     Indication: BIPOLAR I DISORDER
  2. CHLORPROMAZINE HCL [Concomitant]
  3. NAPROXEN SODIUM [Concomitant]

REACTIONS (6)
  - NEPHROGENIC DIABETES INSIPIDUS [None]
  - NEPHROPATHY TOXIC [None]
  - OVERDOSE [None]
  - THERAPEUTIC AGENT TOXICITY [None]
  - TREATMENT NONCOMPLIANCE [None]
  - TREMOR [None]
